FAERS Safety Report 7928254-5 (Version None)
Quarter: 2011Q4

REPORT INFORMATION
  Report Type: 
  Country: None (occurrence: None)
  Receive Date: 20111118
  Receipt Date: 20111118
  Transmission Date: 20120403
  Serious: Yes (Other)
  Sender: FDA-Public Use
  Company Number: DE-PFIZER INC-2011277795

PATIENT
  Sex: Female

DRUGS (2)
  1. FERROUS SULFATE TAB [Suspect]
     Indication: IRON DEFICIENCY
  2. ZIPRASIDONE HYDROCHLORIDE [Suspect]
     Dosage: 20-20-20-40MG

REACTIONS (3)
  - TENSION [None]
  - INTENTIONAL SELF-INJURY [None]
  - DRUG INEFFECTIVE [None]
